FAERS Safety Report 12765267 (Version 2)
Quarter: 2016Q4

REPORT INFORMATION
  Report Type: Spontaneous
  Country: US (occurrence: US)
  Receive Date: 20160921
  Receipt Date: 20161026
  Transmission Date: 20170207
  Serious: No
  Sender: FDA-Public Use
  Company Number: US-PFIZER INC-2016434036

PATIENT
  Age: 87 Year
  Sex: Female

DRUGS (1)
  1. IBRANCE [Suspect]
     Active Substance: PALBOCICLIB
     Indication: BREAST CANCER
     Dosage: 125 MG, CYCLIC(1 A DAY FOR 21 OFF 7)
     Dates: start: 20161017

REACTIONS (3)
  - Blood potassium increased [Recovered/Resolved]
  - Blood iron decreased [Recovered/Resolved]
  - Platelet count decreased [Recovered/Resolved]
